FAERS Safety Report 6498786-8 (Version None)
Quarter: 2009Q4

REPORT INFORMATION
  Report Type: 
  Country: None (occurrence: None)
  Receive Date: 20091215
  Receipt Date: 20091204
  Transmission Date: 20100525
  Serious: Yes (Hospitalization)
  Sender: FDA-Public Use
  Company Number: US-JNJFOC-20091202564

PATIENT
  Age: 71 Year
  Sex: Female
  Weight: 68.04 kg

DRUGS (5)
  1. EXTRA STRENGTH TYLENOL [Suspect]
     Route: 048
  2. EXTRA STRENGTH TYLENOL [Suspect]
     Indication: NASOPHARYNGITIS
     Dosage: 4-5 DAYS
     Route: 048
  3. TYLENOL (CAPLET) [Suspect]
  4. TYLENOL (CAPLET) [Suspect]
     Indication: BACK PAIN
  5. TEMAZEPAM [Concomitant]
     Indication: INSOMNIA

REACTIONS (1)
  - CHOLECYSTITIS [None]
